FAERS Safety Report 6258324-1 (Version None)
Quarter: 2009Q3

REPORT INFORMATION
  Report Type: 
  Country: None (occurrence: None)
  Receive Date: 20090707
  Receipt Date: 20090625
  Transmission Date: 20100115
  Serious: Yes (Hospitalization)
  Sender: FDA-Public Use
  Company Number: PHHO2008US13234

PATIENT
  Sex: Male
  Weight: 63.5 kg

DRUGS (1)
  1. RAD 666 RAD+TAB [Suspect]
     Indication: MANTLE CELL LYMPHOMA REFRACTORY
     Dosage: 10 MG, QD
     Route: 048
     Dates: start: 20080904, end: 20081030

REACTIONS (9)
  - ASTHENIA [None]
  - CONFUSIONAL STATE [None]
  - DECREASED APPETITE [None]
  - DIARRHOEA [None]
  - HYPERGLYCAEMIA [None]
  - POLLAKIURIA [None]
  - PYREXIA [None]
  - THROMBOPHLEBITIS SUPERFICIAL [None]
  - WEIGHT DECREASED [None]
